FAERS Safety Report 4974458-3 (Version None)
Quarter: 2006Q2

REPORT INFORMATION
  Report Type: 
  Country: None (occurrence: None)
  Receive Date: 20060417
  Receipt Date: 20050926
  Transmission Date: 20061013
  Serious: Yes (Death, Hospitalization)
  Sender: FDA-Public Use
  Company Number: US-BOEHRINGER INGELHEIM PHARMACEUTICALS, INC.-2005-BP-17022BP

PATIENT
  Sex: Male
  Weight: 106.59 kg

DRUGS (15)
  1. MIRAPEX [Suspect]
     Indication: PARKINSON'S DISEASE
     Route: 048
  2. LIPITOR [Concomitant]
  3. COREG [Concomitant]
  4. DIGOXIN [Concomitant]
  5. LEXAPRO [Concomitant]
  6. DALMANE [Concomitant]
  7. LASIX [Concomitant]
  8. XALATAN [Concomitant]
  9. REMERON [Concomitant]
  10. PROTONIX [Concomitant]
  11. SINEMET CR [Concomitant]
  12. SINEMET CR [Concomitant]
  13. ALDACTONE [Concomitant]
  14. COUMADIN [Concomitant]
  15. GEODON [Concomitant]

REACTIONS (13)
  - ABNORMAL BEHAVIOUR [None]
  - AGGRESSION [None]
  - CONFUSIONAL STATE [None]
  - DEATH [None]
  - DELUSION [None]
  - DEMENTIA [None]
  - HALLUCINATION [None]
  - HYPOMANIA [None]
  - JUDGEMENT IMPAIRED [None]
  - MANIA [None]
  - PARANOIA [None]
  - PNEUMONIA [None]
  - PSYCHOTIC DISORDER [None]
